FAERS Safety Report 15299870 (Version 1)
Quarter: 2018Q3

REPORT INFORMATION
  Report Type: Spontaneous
  Country: IT (occurrence: IT)
  Receive Date: 20180821
  Receipt Date: 20180821
  Transmission Date: 20181010
  Serious: Yes (Hospitalization)
  Sender: FDA-Public Use
  Company Number: IT-ASTRAZENECA-2018SF02956

PATIENT
  Age: 79 Year
  Sex: Female

DRUGS (3)
  1. AXAGON [Suspect]
     Active Substance: ESOMEPRAZOLE
     Route: 048
     Dates: start: 20050331, end: 20050409
  2. NORVASC [Suspect]
     Active Substance: AMLODIPINE BESYLATE
     Route: 048
     Dates: start: 20050402, end: 20050409
  3. PROCAPTAN [Suspect]
     Active Substance: PERINDOPRIL ERBUMINE
     Route: 048
     Dates: start: 20050401, end: 20050409

REACTIONS (2)
  - Dermatitis exfoliative generalised [Not Recovered/Not Resolved]
  - Rash pruritic [Not Recovered/Not Resolved]

NARRATIVE: CASE EVENT DATE: 20050409
